FAERS Safety Report 10255202 (Version 1)
Quarter: 2014Q2

REPORT INFORMATION
  Report Type: Spontaneous
  Country: US (occurrence: None)
  Receive Date: 20140522
  Receipt Date: 20140522
  Transmission Date: 20141212
  Serious: No
  Sender: FDA-Public Use
  Company Number: 1000054462

PATIENT
  Age: 82 Year
  Sex: Male

DRUGS (9)
  1. TUDORZA PRESSAIR (ACLIDINIUM BROMIDE) (400 MICROGRAM, POWDER) [Suspect]
     Indication: CHRONIC OBSTRUCTIVE PULMONARY DISEASE
     Dosage: 800 UG (400 UG, 2 IN 1)
     Route: 055
     Dates: start: 20140213, end: 20140214
  2. IPRATROPIUM BROMIDE [Concomitant]
  3. FORADIL (FORMOTEROL FUMARATE [Concomitant]
  4. VITAMIN C (ASCORBIC ACID) [Concomitant]
  5. VITAMIN B COMPLEX [Concomitant]
  6. BIOTIN [Concomitant]
  7. CALCIUM [Concomitant]
  8. MAGNESIUM [Concomitant]
  9. MVI (VITAMINS NOS) [Concomitant]

REACTIONS (1)
  - Dyspnoea [None]
